FAERS Safety Report 14682410 (Version 1)
Quarter: 2018Q1

REPORT INFORMATION
  Report Type: Spontaneous
  Country: GB (occurrence: GB)
  Receive Date: 20180326
  Receipt Date: 20180326
  Transmission Date: 20180509
  Serious: Yes (Other)
  Sender: FDA-Public Use
  Company Number: GB-009507513-1803GBR009845

PATIENT
  Age: 65 Year
  Sex: Female
  Weight: 60.32 kg

DRUGS (2)
  1. ALENDRONATE SODIUM. [Suspect]
     Active Substance: ALENDRONATE SODIUM
     Indication: OSTEOPOROSIS
     Dosage: 1 DF, QW
     Route: 048
     Dates: start: 20180119, end: 20180126
  2. CALCIUM (UNSPECIFIED) (+) VITAMIN D (UNSPECIFIED) [Concomitant]
     Active Substance: CALCIUM CARBONATE\VITAMIN D

REACTIONS (9)
  - Musculoskeletal chest pain [Unknown]
  - Myalgia [Unknown]
  - Musculoskeletal stiffness [Recovered/Resolved with Sequelae]
  - Hypoaesthesia [Not Recovered/Not Resolved]
  - Bone pain [Recovered/Resolved with Sequelae]
  - Malaise [Recovered/Resolved]
  - Loss of consciousness [Unknown]
  - Neck pain [Unknown]
  - Balance disorder [Unknown]

NARRATIVE: CASE EVENT DATE: 20180126
